FAERS Safety Report 12866705 (Version 8)
Quarter: 2018Q2

REPORT INFORMATION
  Report Type: Spontaneous
  Country: JP (occurrence: JP)
  Receive Date: 20161020
  Receipt Date: 20180607
  Transmission Date: 20180711
  Serious: Yes (Hospitalization, Other)
  Sender: FDA-Public Use
  Company Number: JP-ABBVIE-16P-087-1755437-00

PATIENT
  Age: 34 Year
  Sex: Female
  Weight: 89.5 kg

DRUGS (4)
  1. ADALIMUMAB [Suspect]
     Active Substance: ADALIMUMAB
     Route: 058
     Dates: start: 20151022, end: 20151023
  2. ADALIMUMAB [Suspect]
     Active Substance: ADALIMUMAB
     Route: 058
     Dates: start: 20120209, end: 20150924
  3. ADALIMUMAB [Suspect]
     Active Substance: ADALIMUMAB
     Route: 058
     Dates: start: 20151222
  4. ADALIMUMAB [Suspect]
     Active Substance: ADALIMUMAB
     Indication: PSORIASIS
     Route: 058
     Dates: start: 20100210, end: 20110415

REACTIONS (19)
  - Rash pustular [Unknown]
  - Limb crushing injury [Recovered/Resolved]
  - Abdominal pain [Unknown]
  - Pustular psoriasis [Recovering/Resolving]
  - Abdominal pain upper [Unknown]
  - Flushing [Unknown]
  - Biliary colic [Recovering/Resolving]
  - Alopecia [Unknown]
  - Skin ulcer [Recovered/Resolved]
  - Fall [Recovering/Resolving]
  - Murphy^s sign positive [Unknown]
  - Generalised oedema [Unknown]
  - Systemic inflammatory response syndrome [Unknown]
  - Wound infection [Recovered/Resolved]
  - Drug effect decreased [Unknown]
  - Shock [Unknown]
  - Hyperthermia [Unknown]
  - Gallbladder enlargement [Unknown]
  - Cholelithiasis [Unknown]

NARRATIVE: CASE EVENT DATE: 20151115
